FAERS Safety Report 7278807-5 (Version None)
Quarter: 2011Q1

REPORT INFORMATION
  Report Type: 
  Country: None (occurrence: None)
  Receive Date: 20110207
  Receipt Date: 20110125
  Transmission Date: 20110831
  Serious: Yes (Other)
  Sender: FDA-Public Use
  Company Number: US-CELGENEUS-163-21880-10091713

PATIENT
  Sex: Male
  Weight: 59.02 kg

DRUGS (4)
  1. REVLIMID [Suspect]
     Indication: MULTIPLE MYELOMA
     Route: 048
     Dates: start: 20100401
  2. MORPHINE SULFATE [Concomitant]
     Route: 048
  3. ANIT-EMETIC [Concomitant]
     Route: 065
  4. PERCOCET [Concomitant]
     Dosage: 10-325MG
     Route: 048

REACTIONS (10)
  - ABDOMINAL PAIN UPPER [None]
  - MIGRAINE [None]
  - HEART RATE INCREASED [None]
  - BLOOD PRESSURE INCREASED [None]
  - ERYTHEMA [None]
  - PALPITATIONS [None]
  - NAUSEA [None]
  - PAIN IN EXTREMITY [None]
  - OEDEMA PERIPHERAL [None]
  - DRY SKIN [None]
